FAERS Safety Report 17122330 (Version 2)
Quarter: 2019Q4

REPORT INFORMATION
  Report Type: Spontaneous
  Country: US (occurrence: US)
  Receive Date: 20191206
  Receipt Date: 20191206
  Transmission Date: 20200122
  Serious: No
  Sender: FDA-Public Use
  Company Number: US-ROCHE-2236080

PATIENT
  Sex: Female
  Weight: 86.26 kg

DRUGS (5)
  1. HERCEPTIN [Suspect]
     Active Substance: TRASTUZUMAB
     Indication: BREAST CANCER STAGE IV
     Dosage: ONGOING; YES
     Route: 065
     Dates: start: 201310
  2. ARIMIDEX [Concomitant]
     Active Substance: ANASTROZOLE
     Dosage: ONGOING; YES
     Route: 048
  3. PERJETA [Suspect]
     Active Substance: PERTUZUMAB
     Indication: BREAST CANCER STAGE IV
     Dosage: ONGOING; YES
     Route: 065
     Dates: start: 201310
  4. XGEVA [Concomitant]
     Active Substance: DENOSUMAB
     Dosage: ONGOING; YES
     Route: 058
  5. SHINGLES VACCINE NOS [Concomitant]

REACTIONS (1)
  - Oral herpes [Not Recovered/Not Resolved]
